FAERS Safety Report 24810563 (Version 3)
Quarter: 2025Q1

REPORT INFORMATION
  Report Type: Spontaneous
  Country: CZ (occurrence: CZ)
  Receive Date: 20250106
  Receipt Date: 20250326
  Transmission Date: 20250409
  Serious: Yes (Other)
  Sender: IPSEN BIOPHARMACEUTICALS, INC.
  Company Number: None

PATIENT
  Age: 58 Year
  Sex: Female
  Weight: 96 kg

DRUGS (2)
  1. DYSPORT [Suspect]
     Active Substance: ABOBOTULINUMTOXINA
     Indication: Dystonia
     Route: 030
     Dates: start: 20231128, end: 20240917
  2. DYSPORT [Suspect]
     Active Substance: ABOBOTULINUMTOXINA
     Route: 030
     Dates: start: 20240917, end: 20240917

REACTIONS (5)
  - Dyspnoea exertional [Recovering/Resolving]
  - Stridor [Recovering/Resolving]
  - Paresis [Recovering/Resolving]
  - Muscular weakness [Recovering/Resolving]
  - Off label use [Unknown]

NARRATIVE: CASE EVENT DATE: 20231128
